FAERS Safety Report 9803453 (Version 2)
Quarter: 2014Q1

REPORT INFORMATION
  Report Type: Spontaneous
  Country: US (occurrence: US)
  Receive Date: 20140108
  Receipt Date: 20140110
  Transmission Date: 20141002
  Serious: Yes (Other)
  Sender: FDA-Public Use
  Company Number: US-PURDUE-USA-2014-0109974

PATIENT
  Age: 49 Year
  Sex: Male

DRUGS (6)
  1. OXYCONTIN (NDA 22-272) [Suspect]
     Indication: PRODUCT USED FOR UNKNOWN INDICATION
  2. NEURONTIN [Concomitant]
     Indication: NEURALGIA
     Dosage: 400 MG, SEE TEXT
     Route: 048
  3. CYMBALTA [Concomitant]
     Indication: NEURALGIA
     Dosage: 60 MG, DAILY
     Route: 048
  4. OXYCODONE HYDROCHLORIDE (SIMILAR TO NDA 22-272) [Concomitant]
     Indication: BREAKTHROUGH PAIN
     Dosage: 15 MG, Q6H PRN
     Route: 048
  5. BUSPAR [Concomitant]
     Indication: ANXIETY
     Dosage: UNK
     Route: 048
  6. MELOXICAM [Concomitant]
     Indication: ANTIINFLAMMATORY THERAPY
     Dosage: 30 MG, UNK
     Route: 048

REACTIONS (3)
  - Psoriatic arthropathy [Unknown]
  - Intervertebral disc degeneration [Unknown]
  - Osteomyelitis [Unknown]
